FAERS Safety Report 19156672 (Version 4)
Quarter: 2021Q2

REPORT INFORMATION
  Report Type: Report from Study
  Country: None (occurrence: IT)
  Receive Date: 20210419
  Receipt Date: 20210430
  Transmission Date: 20210717
  Serious: Yes (Other)
  Sender: FDA-Public Use
  Company Number: IT-ABBVIE-21K-083-3859490-00

PATIENT
  Age: 73 Year
  Sex: Male
  Weight: 91 kg

DRUGS (4)
  1. RINVOQ [Suspect]
     Active Substance: UPADACITINIB
     Indication: DERMATITIS ATOPIC
     Route: 048
     Dates: start: 20210217, end: 20210412
  2. RAMIPRIL + HIDROCLOROTIAZIDA [Concomitant]
     Active Substance: HYDROCHLOROTHIAZIDE\RAMIPRIL
     Indication: HYPERTENSION
     Route: 048
  3. BETAMETHASONE. [Concomitant]
     Active Substance: BETAMETHASONE
     Indication: PRODUCT USED FOR UNKNOWN INDICATION
  4. LEVOTHYROXINE. [Concomitant]
     Active Substance: LEVOTHYROXINE
     Indication: THYROIDITIS
     Route: 048

REACTIONS (9)
  - Deep vein thrombosis [Not Recovered/Not Resolved]
  - Nausea [Unknown]
  - Eczema [Unknown]
  - Off label use [Not Recovered/Not Resolved]
  - Oedema peripheral [Unknown]
  - Sleep disorder [Unknown]
  - Peripheral swelling [Unknown]
  - Dermatitis acneiform [Unknown]
  - Pain in extremity [Unknown]

NARRATIVE: CASE EVENT DATE: 2021
